FAERS Safety Report 14334570 (Version 3)
Quarter: 2018Q1

REPORT INFORMATION
  Report Type: Report from Study
  Country: CA (occurrence: CA)
  Receive Date: 20171228
  Receipt Date: 20180214
  Transmission Date: 20180509
  Serious: Yes (Hospitalization, Other)
  Sender: FDA-Public Use
  Company Number: CA-TAKEDA-2017TUS026690

PATIENT
  Age: 50 Year
  Sex: Female

DRUGS (5)
  1. VEDOLIZUMAB [Suspect]
     Active Substance: VEDOLIZUMAB
     Indication: CROHN^S DISEASE
     Dosage: 300 MG, UNK
     Route: 042
     Dates: start: 20171103
  2. PREDNISONE. [Concomitant]
     Active Substance: PREDNISONE
     Dosage: UNK
     Dates: start: 201706
  3. PENTASA [Concomitant]
     Active Substance: MESALAMINE
     Dosage: 4 G, UNK
     Dates: start: 201707
  4. RIFAXIMIN. [Concomitant]
     Active Substance: RIFAXIMIN
     Indication: RADIOTHERAPY
     Dosage: UNK
     Route: 048
  5. TAMOXIFEN                          /00388702/ [Concomitant]
     Active Substance: TAMOXIFEN
     Dosage: 20 MG, QD
     Route: 048
     Dates: end: 20171128

REACTIONS (2)
  - Pulmonary embolism [Unknown]
  - Rib fracture [Unknown]

NARRATIVE: CASE EVENT DATE: 20171128
